FAERS Safety Report 5633433-6 (Version None)
Quarter: 2008Q1

REPORT INFORMATION
  Report Type: 
  Country: None (occurrence: None)
  Receive Date: 20080221
  Receipt Date: 20080213
  Transmission Date: 20080703
  Serious: Yes (Hospitalization, Other)
  Sender: FDA-Public Use
  Company Number: GB-TEVA-167685ISR

PATIENT
  Age: 63 Year
  Sex: Female
  Weight: 60 kg

DRUGS (4)
  1. ATENOLOL [Suspect]
     Route: 048
  2. AZATHIOPRINE [Suspect]
     Dates: start: 20071217, end: 20080106
  3. MAXIDEX [Suspect]
     Route: 047
     Dates: start: 20071001
  4. SIROLIMUS [Suspect]
     Route: 048

REACTIONS (4)
  - DIARRHOEA [None]
  - RENAL FAILURE ACUTE [None]
  - RHABDOMYOLYSIS [None]
  - VOMITING [None]
